FAERS Safety Report 4711864-6 (Version None)
Quarter: 2005Q2

REPORT INFORMATION
  Report Type: 
  Country: None (occurrence: None)
  Receive Date: 20050629
  Receipt Date: 20050525
  Transmission Date: 20051028
  Serious: No
  Sender: FDA-Public Use
  Company Number: 05P-163-0301510-00

PATIENT
  Age: 60 Year
  Sex: Female
  Weight: 64.4108 kg

DRUGS (3)
  1. HUMIRA [Suspect]
     Indication: RHEUMATOID ARTHRITIS
     Dosage: 40 MG, 1 IN 2 WK, SUBCUTANEOUS
     Route: 058
     Dates: start: 20040201
  2. THYROID TAB [Concomitant]
  3. CYPROHEPTADINE HYDROCHLORIDE [Concomitant]

REACTIONS (2)
  - INSOMNIA [None]
  - POLLAKIURIA [None]
